FAERS Safety Report 7383742-8 (Version None)
Quarter: 2011Q1

REPORT INFORMATION
  Report Type: 
  Country: None (occurrence: None)
  Receive Date: 20110328
  Receipt Date: 20110328
  Transmission Date: 20110831
  Serious: Yes (Other)
  Sender: FDA-Public Use
  Company Number: None

PATIENT
  Sex: Female
  Weight: 54.5 kg

DRUGS (4)
  1. OXYCONTIN [Suspect]
     Indication: PAIN
     Dosage: 80MG BID ORAL EVERYDAY BID
     Route: 048
  2. OXYCONTIN [Suspect]
     Indication: OSTEOARTHRITIS
     Dosage: 80MG BID ORAL EVERYDAY BID
     Route: 048
  3. OXYCONTIN [Suspect]
     Indication: ARTHRITIS
     Dosage: 80MG BID ORAL EVERYDAY BID
     Route: 048
  4. OXYCONTIN [Suspect]
     Indication: POST LAMINECTOMY SYNDROME
     Dosage: 80MG BID ORAL EVERYDAY BID
     Route: 048

REACTIONS (7)
  - PALPITATIONS [None]
  - CHEST PAIN [None]
  - ACTIVITIES OF DAILY LIVING IMPAIRED [None]
  - PRODUCT FORMULATION ISSUE [None]
  - DRUG INEFFECTIVE [None]
  - HEADACHE [None]
  - PAIN [None]
